FAERS Safety Report 18211414 (Version 1)
Quarter: 2020Q3

REPORT INFORMATION
  Report Type: Spontaneous
  Country: US (occurrence: US)
  Receive Date: 20200831
  Receipt Date: 20200831
  Transmission Date: 20201103
  Serious: Yes (Hospitalization, Other)
  Sender: FDA-Public Use
  Company Number: US-JNJFOC-20200834495

PATIENT
  Sex: Female

DRUGS (5)
  1. NAPROXEN. [Suspect]
     Active Substance: NAPROXEN
     Indication: PAIN
     Route: 048
  2. OXYCODONE [Suspect]
     Active Substance: OXYCODONE
     Indication: PAIN
     Route: 048
  3. PARACETAMOL [Suspect]
     Active Substance: ACETAMINOPHEN
     Indication: PAIN
     Route: 048
  4. KETOROLAC [Suspect]
     Active Substance: KETOROLAC TROMETHAMINE
     Route: 042
  5. KETOROLAC [Suspect]
     Active Substance: KETOROLAC TROMETHAMINE
     Indication: PAIN
     Route: 042

REACTIONS (13)
  - Postoperative wound infection [Unknown]
  - Hypersensitivity [Unknown]
  - Postpartum haemorrhage [Unknown]
  - Incision site pain [Unknown]
  - Vaginal haemorrhage [Unknown]
  - Abdominal pain [Unknown]
  - Uterine atony [Unknown]
  - Transfusion [Unknown]
  - Urinary tract infection [Unknown]
  - Dyspnoea [Unknown]
  - Endometritis [Unknown]
  - Cellulitis [Unknown]
  - Haemorrhage [Unknown]
